FAERS Safety Report 7742461-6 (Version None)
Quarter: 2011Q3

REPORT INFORMATION
  Report Type: 
  Country: None (occurrence: None)
  Receive Date: 20110912
  Receipt Date: 20110330
  Transmission Date: 20111222
  Serious: No
  Sender: FDA-Public Use
  Company Number: US-BAYER-2011-027849

PATIENT
  Sex: Female

DRUGS (1)
  1. MIRENA [Suspect]
     Indication: MENORRHAGIA
     Dosage: UNK
     Dates: start: 20110329

REACTIONS (3)
  - HEADACHE [None]
  - MYDRIASIS [None]
  - FEELING ABNORMAL [None]
